FAERS Safety Report 6593708-3 (Version None)
Quarter: 2010Q1

REPORT INFORMATION
  Report Type: 
  Country: None (occurrence: None)
  Receive Date: 20100222
  Receipt Date: 20091210
  Transmission Date: 20100710
  Serious: No
  Sender: FDA-Public Use
  Company Number: US-BRISTOL-MYERS SQUIBB COMPANY-14890495

PATIENT
  Age: 60 Year
  Sex: Female
  Weight: 75 kg

DRUGS (15)
  1. ORENCIA [Suspect]
     Indication: RHEUMATOID ARTHRITIS
     Dates: start: 20090623, end: 20091101
  2. AMBIEN [Concomitant]
  3. FOLIC ACID [Concomitant]
  4. INDERAL [Concomitant]
  5. PRILOSEC [Concomitant]
  6. CLONIDINE [Concomitant]
  7. FENOFIBRATE [Concomitant]
  8. SIMVASTATIN [Concomitant]
  9. PROPRANOLOL [Concomitant]
  10. SYNTHROID [Concomitant]
  11. VERAPAMIL [Concomitant]
  12. OXYCODONE HCL AND ACETAMINOPHEN [Concomitant]
  13. METFORMIN [Concomitant]
  14. VITAMIN D [Concomitant]
  15. METHOTREXATE [Concomitant]

REACTIONS (1)
  - DRUG INEFFECTIVE [None]
